FAERS Safety Report 11546655 (Version 2)
Quarter: 2015Q4

REPORT INFORMATION
  Report Type: Spontaneous
  Country: HR (occurrence: HR)
  Receive Date: 20150924
  Receipt Date: 20151008
  Transmission Date: 20160304
  Serious: Yes (Hospitalization, Other)
  Sender: FDA-Public Use
  Company Number: HR-ABBVIE-15K-216-1466105-00

PATIENT
  Sex: Female

DRUGS (11)
  1. METHOTREXATE [Concomitant]
     Active Substance: METHOTREXATE
     Dosage: 2X 10
     Dates: start: 201202
  2. METHOTREXATE [Concomitant]
     Active Substance: METHOTREXATE
     Dosage: 25 MG
     Dates: start: 200703
  3. METHOTREXATE [Concomitant]
     Active Substance: METHOTREXATE
     Dosage: 2X10 MG
     Dates: start: 200911
  4. METHOTREXATE [Concomitant]
     Active Substance: METHOTREXATE
     Dosage: 2X12,5 MG
     Dates: start: 201103
  5. METHOTREXATE [Concomitant]
     Active Substance: METHOTREXATE
     Dosage: 15 MG
     Dates: start: 200511, end: 200512
  6. HUMIRA [Suspect]
     Active Substance: ADALIMUMAB
     Indication: PSORIASIS
     Route: 058
     Dates: start: 201211
  7. METHOTREXATE [Concomitant]
     Active Substance: METHOTREXATE
     Indication: PRODUCT USED FOR UNKNOWN INDICATION
     Dosage: 10 MG
     Dates: start: 200510, end: 200511
  8. METHOTREXATE [Concomitant]
     Active Substance: METHOTREXATE
     Dosage: 2X7,5 MG
  9. METHOTREXATE [Concomitant]
     Active Substance: METHOTREXATE
     Dosage: 2X5 MG
     Dates: end: 201209
  10. HUMIRA [Suspect]
     Active Substance: ADALIMUMAB
     Indication: ARTHRITIS
     Route: 058
     Dates: start: 201202, end: 201209
  11. METHOTREXATE [Concomitant]
     Active Substance: METHOTREXATE
     Dosage: 20 MG
     Dates: start: 200512

REACTIONS (12)
  - Biliary adenoma [Recovered/Resolved]
  - Humerus fracture [Unknown]
  - Abdominal pain [Recovered/Resolved]
  - Hepatic cyst [Unknown]
  - Chills [Recovered/Resolved]
  - Psoriasis [Unknown]
  - Arthritis [Unknown]
  - Pancreatic cyst [Unknown]
  - Traumatic fracture [Unknown]
  - Pyrexia [Recovered/Resolved]
  - Pulmonary mass [Unknown]
  - Mycobacterium tuberculosis complex test positive [Unknown]

NARRATIVE: CASE EVENT DATE: 201206
